FAERS Safety Report 15333186 (Version 1)
Quarter: 2018Q3

REPORT INFORMATION
  Report Type: Spontaneous
  Country: GB (occurrence: GB)
  Receive Date: 20180830
  Receipt Date: 20180830
  Transmission Date: 20181010
  Serious: Yes (Other)
  Sender: FDA-Public Use
  Company Number: GB-TEVA-2018-GB-950096

PATIENT
  Age: 74 Year
  Sex: Female
  Weight: 64.41 kg

DRUGS (5)
  1. PARACETAMOL [Concomitant]
     Active Substance: ACETAMINOPHEN
  2. NITROFURANTOIN. [Suspect]
     Active Substance: NITROFURANTOIN
     Indication: URINARY TRACT INFECTION
     Route: 048
     Dates: start: 20180801, end: 20180803
  3. ASPAR PHARMS IBUPROFEN [Concomitant]
  4. PHYTOSTEROLS [Concomitant]
     Active Substance: PHYTOSTEROLS
  5. OMEGA?3?ACID TRIGLYCERIDES [Concomitant]
     Active Substance: OMEGA-3 FATTY ACIDS

REACTIONS (6)
  - Myalgia [Recovered/Resolved]
  - Peripheral swelling [Recovering/Resolving]
  - Paraesthesia [Recovering/Resolving]
  - Nausea [Recovering/Resolving]
  - Dysgeusia [Recovering/Resolving]
  - Back pain [Recovering/Resolving]

NARRATIVE: CASE EVENT DATE: 20180801
